FAERS Safety Report 17188497 (Version 1)
Quarter: 2019Q4

REPORT INFORMATION
  Report Type: Spontaneous
  Country: CA (occurrence: CA)
  Receive Date: 20191222
  Receipt Date: 20191222
  Transmission Date: 20200122
  Serious: Yes (Other)
  Sender: FDA-Public Use
  Company Number: CA-CELLTRION INC.-2019CA023185

PATIENT

DRUGS (7)
  1. MEZAVANT [Concomitant]
     Active Substance: MESALAMINE
     Dosage: 1.2 G, 4 PILLS
     Route: 065
  2. INFLECTRA [Suspect]
     Active Substance: INFLIXIMAB-DYYB
     Dosage: 5 MG/KG EVERY 0,2,6 WEEKS THEN EVERY 6 WEEKS
     Route: 042
     Dates: start: 20191128
  3. INFLECTRA [Suspect]
     Active Substance: INFLIXIMAB-DYYB
     Indication: COLITIS ULCERATIVE
     Dosage: 5 MG/KG EVERY 0,2,6 WEEKS THEN EVERY 6 WEEKS
     Route: 042
     Dates: start: 20190903
  4. INFLECTRA [Suspect]
     Active Substance: INFLIXIMAB-DYYB
     Dosage: 5 MG/KG EVERY 0,2,6 WEEKS THEN EVERY 6 WEEKS
     Route: 042
     Dates: start: 20191016
  5. VITAMIN D [COLECALCIFEROL] [Concomitant]
     Active Substance: CHOLECALCIFEROL
     Dosage: UNK, DAILY
     Route: 065
  6. INFLECTRA [Suspect]
     Active Substance: INFLIXIMAB-DYYB
     Dosage: 5 MG/KG EVERY 0,2,6 WEEKS THEN EVERY 6 WEEKS
     Route: 042
     Dates: start: 20190918
  7. URSODIOL. [Concomitant]
     Active Substance: URSODIOL
     Indication: CHOLANGITIS SCLEROSING
     Dosage: UNK

REACTIONS (7)
  - Incorrect dose administered [Unknown]
  - Off label use [Unknown]
  - Condition aggravated [Unknown]
  - Off label use [Unknown]
  - Drug level above therapeutic [Unknown]
  - Intentional product use issue [Unknown]
  - Fatigue [Unknown]

NARRATIVE: CASE EVENT DATE: 20190903
